FAERS Safety Report 13594398 (Version 1)
Quarter: 2017Q2

REPORT INFORMATION
  Report Type: Not Available
  Country: HR (occurrence: HR)
  Receive Date: 20170530
  Receipt Date: 20170530
  Transmission Date: 20170830
  Serious: Yes (Life-Threatening)
  Sender: FDA-Public Use
  Company Number: HR-ANIPHARMA-2017-HR-000001

PATIENT
  Age: 32 Year
  Sex: Male

DRUGS (2)
  1. ALPRAZOLAM (NON-SPECIFIC) [Suspect]
     Active Substance: ALPRAZOLAM
     Dosage: 5MG
     Route: 048
  2. QUETIAPINE. [Suspect]
     Active Substance: QUETIAPINE
     Dosage: 24G
     Route: 048

REACTIONS (8)
  - Rhabdomyolysis [Recovered/Resolved]
  - Suicide attempt [Recovered/Resolved]
  - Hypotension [Recovered/Resolved]
  - Neuroleptic malignant syndrome [Recovered/Resolved]
  - Electrocardiogram QRS complex prolonged [Unknown]
  - Coma [Recovered/Resolved]
  - Paresis [Recovered/Resolved]
  - Renal failure [None]
